FAERS Safety Report 9205647 (Version 2)
Quarter: 2013Q2

REPORT INFORMATION
  Report Type: Spontaneous
  Country: US (occurrence: US)
  Receive Date: 20130403
  Receipt Date: 20130418
  Transmission Date: 20140414
  Serious: Yes (Hospitalization)
  Sender: FDA-Public Use
  Company Number: US-BIOGENIDEC-2013BI028870

PATIENT
  Sex: Female

DRUGS (2)
  1. TYSABRI [Suspect]
     Indication: MULTIPLE SCLEROSIS
     Route: 042
     Dates: start: 20070920, end: 20100420
  2. TYSABRI [Suspect]
     Indication: MULTIPLE SCLEROSIS
     Route: 042
     Dates: start: 20100823

REACTIONS (5)
  - Lung infection [Recovered/Resolved]
  - Mycobacterium avium complex infection [Recovered/Resolved]
  - Pain in extremity [Not Recovered/Not Resolved]
  - Joint lock [Recovered/Resolved]
  - Arthralgia [Not Recovered/Not Resolved]
